FAERS Safety Report 5646891-8 (Version None)
Quarter: 2008Q1

REPORT INFORMATION
  Report Type: 
  Country: None (occurrence: None)
  Receive Date: 20080229
  Receipt Date: 20080229
  Transmission Date: 20080703
  Serious: Yes (Other)
  Sender: FDA-Public Use
  Company Number: None

PATIENT
  Age: 62 Year
  Sex: Male
  Weight: 77.1115 kg

DRUGS (1)
  1. CHANTIX [Suspect]
     Indication: SMOKING CESSATION THERAPY
     Dosage: 10MG ONCE A DAY BY MOUTH
     Route: 048
     Dates: start: 20070103, end: 20070430

REACTIONS (7)
  - ABNORMAL BEHAVIOUR [None]
  - AGGRESSION [None]
  - ANGER [None]
  - ANXIETY [None]
  - IMPAIRED DRIVING ABILITY [None]
  - IRRITABILITY [None]
  - MOOD ALTERED [None]
